FAERS Safety Report 9084709 (Version 2)
Quarter: 2013Q1

REPORT INFORMATION
  Report Type: Spontaneous
  Country: US (occurrence: US)
  Receive Date: 20130131
  Receipt Date: 20130328
  Transmission Date: 20140127
  Serious: No
  Sender: FDA-Public Use
  Company Number: US-PFIZER INC-2013034080

PATIENT
  Age: 60 Year
  Sex: Female
  Weight: 47.62 kg

DRUGS (1)
  1. TOVIAZ [Suspect]
     Indication: HYPERTONIC BLADDER
     Dosage: 8 MG, 1X/DAY
     Route: 048

REACTIONS (3)
  - Constipation [Unknown]
  - Drug ineffective [Unknown]
  - Dry mouth [Unknown]
